FAERS Safety Report 8822921 (Version 1)
Quarter: 2012Q4

REPORT INFORMATION
  Report Type: 
  Country: AU (occurrence: AU)
  Receive Date: 20121003
  Receipt Date: 20121003
  Transmission Date: 20130627
  Serious: Yes (Hospitalization)
  Sender: FDA-Public Use
  Company Number: PHHY2011AU107863

PATIENT
  Sex: Male

DRUGS (4)
  1. CLOZARIL [Suspect]
     Dosage: 450 mg,
     Dates: start: 19960827
  2. CLEXANE COVER [Concomitant]
  3. BISOPROLOL [Concomitant]
  4. RAMIPRIL [Concomitant]

REACTIONS (20)
  - Intracardiac thrombus [Unknown]
  - Catheter site phlebitis [Unknown]
  - Catheter site erythema [Unknown]
  - Arteriosclerosis coronary artery [Unknown]
  - Coronary artery stenosis [Unknown]
  - Left ventricular hypertrophy [Unknown]
  - Dilatation atrial [Unknown]
  - Coronary artery occlusion [Unknown]
  - Injection site mass [Unknown]
  - Aortic valve sclerosis [Unknown]
  - Mitral valve incompetence [Unknown]
  - Tricuspid valve incompetence [Unknown]
  - Ischaemic cardiomyopathy [Unknown]
  - Ejection fraction decreased [Recovering/Resolving]
  - Left ventricular dysfunction [Unknown]
  - Diastolic dysfunction [Unknown]
  - Left ventricular end-diastolic pressure increased [Unknown]
  - Acute myocardial infarction [Unknown]
  - Troponin I increased [Unknown]
  - Chest pain [Unknown]
